FAERS Safety Report 7332127-9 (Version None)
Quarter: 2011Q1

REPORT INFORMATION
  Report Type: 
  Country: None (occurrence: None)
  Receive Date: 20110304
  Receipt Date: 20110223
  Transmission Date: 20110831
  Serious: Yes (Death, Other)
  Sender: FDA-Public Use
  Company Number: PHHY2011JP15587

PATIENT
  Sex: Female
  Weight: 45 kg

DRUGS (9)
  1. DIFLUCAN [Concomitant]
     Indication: PROPHYLAXIS
     Dosage: 200 MG, UNK
     Route: 048
     Dates: start: 20090317, end: 20100916
  2. ONEALFA [Concomitant]
     Indication: PROPHYLAXIS
     Dosage: 1.0 UG, UNK
     Route: 048
     Dates: end: 20100916
  3. EXJADE [Suspect]
     Indication: APLASTIC ANAEMIA
     Dosage: 1000 MG, DAILY
     Route: 048
     Dates: start: 20100518, end: 20100816
  4. GLAKAY [Concomitant]
     Indication: APLASTIC ANAEMIA
     Dosage: 45 MG, UNK
     Route: 048
     Dates: end: 20100916
  5. TAKEPRON [Concomitant]
     Indication: PROPHYLAXIS
     Dosage: 30 MG, UNK
     Route: 048
     Dates: start: 20090303, end: 20100916
  6. BACTRIM [Concomitant]
     Indication: PROPHYLAXIS
     Dosage: 1 DF, UNK
     Route: 048
     Dates: start: 20090317, end: 20100916
  7. MIGLITOL [Concomitant]
     Dosage: 150 MG, UNK
     Route: 048
     Dates: start: 20100414, end: 20100916
  8. RED CELLS MAP [Concomitant]
  9. NEORAL [Concomitant]
     Indication: APLASTIC ANAEMIA
     Dosage: 150 MG, UNK
     Route: 048
     Dates: start: 20090304, end: 20100607

REACTIONS (5)
  - HEPATIC FUNCTION ABNORMAL [None]
  - DISEASE PROGRESSION [None]
  - PNEUMONIA [None]
  - RENAL IMPAIRMENT [None]
  - MULTI-ORGAN FAILURE [None]
